FAERS Safety Report 6070574-6 (Version None)
Quarter: 2009Q1

REPORT INFORMATION
  Report Type: 
  Country: None (occurrence: None)
  Receive Date: 20090209
  Receipt Date: 20090202
  Transmission Date: 20090719
  Serious: Yes (Other)
  Sender: FDA-Public Use
  Company Number: KR-PFIZER INC-2009159832

PATIENT

DRUGS (3)
  1. ATORVASTATIN CALCIUM [Suspect]
     Indication: BLOOD CHOLESTEROL INCREASED
     Dosage: 10 MG, 1X/DAY
     Route: 048
     Dates: start: 20080901, end: 20081101
  2. ATORVASTATIN CALCIUM [Suspect]
     Indication: HYPERLIPIDAEMIA
  3. AMLODIPINE CAMSILATE [Concomitant]
     Route: 048
     Dates: start: 20080501

REACTIONS (1)
  - AGEUSIA [None]
